FAERS Safety Report 6917820-1 (Version None)
Quarter: 2010Q3

REPORT INFORMATION
  Report Type: 
  Country: None (occurrence: None)
  Receive Date: 20100810
  Receipt Date: 20100806
  Transmission Date: 20110219
  Serious: Yes (Other)
  Sender: FDA-Public Use
  Company Number: PH-ABBOTT-10P-128-0658928-00

PATIENT
  Age: 6 Year
  Sex: Male
  Weight: 40 kg

DRUGS (1)
  1. DEPACON [Suspect]
     Indication: CONVULSION
     Dosage: 12MG/KG FOR 1 HOUR INFUSION (480MG/HOUR)
     Route: 042
     Dates: start: 20100715, end: 20100715

REACTIONS (2)
  - HEPATIC ENZYME INCREASED [None]
  - STATUS EPILEPTICUS [None]
